FAERS Safety Report 8108740-8 (Version None)
Quarter: 2012Q1

REPORT INFORMATION
  Report Type: 
  Country: None (occurrence: None)
  Receive Date: 20120202
  Receipt Date: 20120126
  Transmission Date: 20120608
  Serious: Yes (Other)
  Sender: FDA-Public Use
  Company Number: PHHY2012IN007240

PATIENT
  Age: 19 Year
  Sex: Male

DRUGS (4)
  1. FLUVOXAMINE MALEATE [Interacting]
     Dosage: 150 MG, DAY
  2. CLOMIPRAMINE HCL [Concomitant]
     Indication: OBSESSIVE-COMPULSIVE DISORDER
     Dosage: 75 MG, UNK
  3. RISPERIDONE [Interacting]
     Indication: OBSESSIVE-COMPULSIVE DISORDER
     Dosage: 3 MG, DAILY
  4. FLUVOXAMINE MALEATE [Suspect]
     Indication: OBSESSIVE-COMPULSIVE DISORDER
     Dosage: 50 MG, DAY

REACTIONS (3)
  - GYNAECOMASTIA [None]
  - DRUG INTERACTION [None]
  - GALACTORRHOEA [None]
